FAERS Safety Report 5899384-7 (Version None)
Quarter: 2008Q3

REPORT INFORMATION
  Report Type: 
  Country: None (occurrence: None)
  Receive Date: 20080924
  Receipt Date: 20080908
  Transmission Date: 20090109
  Serious: Yes (Other)
  Sender: FDA-Public Use
  Company Number: TRP_05886_2008

PATIENT
  Sex: Male

DRUGS (4)
  1. RIBAVIRIN [Suspect]
     Indication: HEPATITIS C VIRUS TEST
     Dosage: (400 MG QD ORAL)
     Route: 048
     Dates: start: 20080725
  2. PEGASYS [Suspect]
     Indication: HEPATITIS C VIRUS TEST
     Dosage: (135 UG 1X/WEEK SUBCUTANEOUS)
     Route: 058
     Dates: start: 20080725
  3. NOVOLOG [Concomitant]
  4. NOVOLIN [Concomitant]

REACTIONS (14)
  - ASCITES [None]
  - BLOOD GLUCOSE FLUCTUATION [None]
  - DEPRESSION [None]
  - DIABETIC RETINOPATHY [None]
  - FATIGUE [None]
  - FEELING COLD [None]
  - FEELING HOT [None]
  - HAEMATEMESIS [None]
  - MYODESOPSIA [None]
  - NAUSEA [None]
  - RED BLOOD CELL COUNT DECREASED [None]
  - TREATMENT NONCOMPLIANCE [None]
  - VISUAL IMPAIRMENT [None]
  - WEIGHT INCREASED [None]
